FAERS Safety Report 4916616-X (Version None)
Quarter: 2006Q1

REPORT INFORMATION
  Report Type: 
  Country: None (occurrence: None)
  Receive Date: 20060220
  Receipt Date: 20060207
  Transmission Date: 20060701
  Serious: Yes (Hospitalization)
  Sender: FDA-Public Use
  Company Number: FR-GLAXOSMITHKLINE-B0412219A

PATIENT
  Age: 85 Year
  Sex: Female

DRUGS (3)
  1. AUGMENTIN '125' [Suspect]
     Dates: start: 20051126
  2. KARDEGIC [Concomitant]
     Route: 048
     Dates: start: 20051202
  3. PLAVIX [Concomitant]
     Route: 065

REACTIONS (3)
  - ABDOMINAL PAIN [None]
  - RASH MACULO-PAPULAR [None]
  - TOXIC SKIN ERUPTION [None]
